FAERS Safety Report 11797398 (Version 1)
Quarter: 2015Q4

REPORT INFORMATION
  Report Type: Spontaneous
  Country: FR (occurrence: FR)
  Receive Date: 20151203
  Receipt Date: 20151203
  Transmission Date: 20160305
  Serious: Yes (Hospitalization)
  Sender: FDA-Public Use
  Company Number: FR-BAXTER-2015BAX063687

PATIENT
  Age: 2 Year
  Sex: Male

DRUGS (46)
  1. UROMITEXAN 5 G/50 ML, SOLUTION INJECTABLE POUR PERFUSION EN FLACON [Suspect]
     Active Substance: MESNA
     Indication: OSTEOSARCOMA
     Dosage: 1 CYCLE, FIRST LINE OF TREATMENT
     Route: 042
     Dates: start: 20121207, end: 20121211
  2. UROMITEXAN 5 G/50 ML, SOLUTION INJECTABLE POUR PERFUSION EN FLACON [Suspect]
     Active Substance: MESNA
     Dosage: 1 CYCLE, FIRST LINE OF TREATMENT
     Route: 042
     Dates: start: 20130301, end: 20130303
  3. HOLOXAN 2000 MG, POUDRE POUR USAGE PARENT?RAL [Suspect]
     Active Substance: IFOSFAMIDE
     Dosage: 1 CYCLE, FIRST LINE OF TREATMENT
     Route: 042
     Dates: start: 20130118, end: 20130121
  4. HOLOXAN 2000 MG, POUDRE POUR USAGE PARENT?RAL [Suspect]
     Active Substance: IFOSFAMIDE
     Dosage: 1 CYCLE, FIRST LINE OF TREATMENT
     Route: 042
     Dates: start: 20130208, end: 20130209
  5. IFOSFAMIDE EG [Suspect]
     Active Substance: IFOSFAMIDE
     Dosage: 1 CYCLE, SECOND LINE OF TREATMENT
     Route: 042
     Dates: start: 20130702, end: 20130706
  6. METHOTREXATE [Suspect]
     Active Substance: METHOTREXATE
     Indication: OSTEOSARCOMA
     Dosage: SECOND LINE OF TREATMENT
     Route: 042
     Dates: start: 20130418, end: 20130418
  7. METHOTREXATE [Suspect]
     Active Substance: METHOTREXATE
     Dosage: SECOND LINE OF TREATMENT
     Route: 042
     Dates: start: 20130918, end: 20130918
  8. ADRIBLASTINE [Suspect]
     Active Substance: DOXORUBICIN
     Indication: OSTEOSARCOMA
     Dosage: 1 CYCLE
     Route: 065
     Dates: start: 20121207, end: 20121211
  9. UROMITEXAN 5 G/50 ML, SOLUTION INJECTABLE POUR PERFUSION EN FLACON [Suspect]
     Active Substance: MESNA
     Dosage: 1 CYCLE, SECOND LINE OF TREATMENT
     Route: 042
     Dates: start: 20130828, end: 20130831
  10. HOLOXAN 2000 MG, POUDRE POUR USAGE PARENT?RAL [Suspect]
     Active Substance: IFOSFAMIDE
     Indication: OSTEOSARCOMA
     Dosage: 1 CYCLE, FIRST LINE OF TREATMENT
     Route: 042
     Dates: start: 20121207, end: 20121207
  11. METHOTREXATE [Suspect]
     Active Substance: METHOTREXATE
     Dosage: SECOND LINE OF TREATMENT
     Route: 042
     Dates: start: 20130702, end: 20130702
  12. ADRIBLASTINE [Suspect]
     Active Substance: DOXORUBICIN
     Dosage: 1 CYCLE
     Route: 065
     Dates: start: 20121228, end: 20121230
  13. ADRIBLASTINE [Suspect]
     Active Substance: DOXORUBICIN
     Dosage: 1 CYCLE
     Route: 065
     Dates: start: 20130301, end: 20130303
  14. ETOPOSIDE MYLAN [Suspect]
     Active Substance: ETOPOSIDE
     Dosage: 1 CYCLE, SECOND LINE OF TREATMENT
     Route: 042
     Dates: start: 20130828, end: 20130831
  15. ETOPOSIDE MYLAN [Suspect]
     Active Substance: ETOPOSIDE
     Dosage: 1 CYCLE, SECOND LINE OF TREATMENT
     Route: 042
     Dates: start: 20130901, end: 20130901
  16. ADRIBLASTINE [Suspect]
     Active Substance: DOXORUBICIN
     Dosage: 1 CYCLE
     Route: 065
     Dates: start: 20130208, end: 20130209
  17. ADRIBLASTINE [Suspect]
     Active Substance: DOXORUBICIN
     Dosage: 1 CYCLE
     Route: 065
     Dates: start: 20130211, end: 20130211
  18. CISPLATINE MERCK [Suspect]
     Active Substance: CISPLATIN
     Dosage: 1 CYCLE
     Route: 065
     Dates: start: 20130301, end: 20130303
  19. FOLINIC ACID [Concomitant]
     Active Substance: LEUCOVORIN
     Indication: PRODUCT USED FOR UNKNOWN INDICATION
     Route: 065
  20. UROMITEXAN 5 G/50 ML, SOLUTION INJECTABLE POUR PERFUSION EN FLACON [Suspect]
     Active Substance: MESNA
     Dosage: 1 CYCLE, FIRST LINE OF TREATMENT
     Route: 042
     Dates: start: 20130208, end: 20130209
  21. UROMITEXAN 5 G/50 ML, SOLUTION INJECTABLE POUR PERFUSION EN FLACON [Suspect]
     Active Substance: MESNA
     Dosage: 1 CYCLE, SECOND LINE OF TREATMENT
     Route: 042
     Dates: start: 20130702, end: 20130706
  22. IFOSFAMIDE EG [Suspect]
     Active Substance: IFOSFAMIDE
     Dosage: 1 CYCLE, SECOND LINE OF TREATMENT
     Route: 042
     Dates: start: 20130901, end: 20130901
  23. METHOTREXATE [Suspect]
     Active Substance: METHOTREXATE
     Dosage: SECOND LINE OF TREATMENT
     Route: 042
     Dates: start: 20130610, end: 20130610
  24. METHOTREXATE [Suspect]
     Active Substance: METHOTREXATE
     Dosage: SECOND LINE OF TREATMENT
     Route: 042
     Dates: start: 20130618, end: 20130618
  25. METHOTREXATE [Suspect]
     Active Substance: METHOTREXATE
     Dosage: SECOND LINE OF TREATMENT
     Route: 042
     Dates: start: 20130625, end: 20130625
  26. UROMITEXAN 5 G/50 ML, SOLUTION INJECTABLE POUR PERFUSION EN FLACON [Suspect]
     Active Substance: MESNA
     Dosage: 1 CYCLE, FIRST LINE OF TREATMENT
     Route: 042
     Dates: start: 20121228, end: 20121230
  27. IFOSFAMIDE EG [Suspect]
     Active Substance: IFOSFAMIDE
     Indication: OSTEOSARCOMA
     Dosage: 1 CYCLE, SECOND LINE OF TREATMENT
     Route: 042
     Dates: start: 20130520, end: 20130524
  28. ETOPOSIDE MYLAN [Suspect]
     Active Substance: ETOPOSIDE
     Indication: OSTEOSARCOMA
     Dosage: 1 CYCLE, SECOND LINE OF TREATMENT
     Route: 042
     Dates: start: 20130520, end: 20130524
  29. ETOPOSIDE MYLAN [Suspect]
     Active Substance: ETOPOSIDE
     Dosage: 1 CYCLE, SECOND LINE OF TREATMENT
     Route: 042
     Dates: start: 20130702, end: 20130706
  30. METHOTREXATE [Suspect]
     Active Substance: METHOTREXATE
     Dosage: SECOND LINE OF TREATMENT
     Route: 042
     Dates: start: 20130725, end: 20130725
  31. METHOTREXATE [Suspect]
     Active Substance: METHOTREXATE
     Dosage: SECOND LINE OF TREATMENT
     Route: 042
     Dates: start: 20130817, end: 20130817
  32. METHOTREXATE [Suspect]
     Active Substance: METHOTREXATE
     Dosage: SECOND LINE OF TREATMENT
     Route: 042
     Dates: start: 20131007, end: 20131007
  33. CISPLATINE MERCK [Suspect]
     Active Substance: CISPLATIN
     Dosage: 1 CYCLE
     Route: 065
     Dates: start: 20130118, end: 20130121
  34. UROMITEXAN 5 G/50 ML, SOLUTION INJECTABLE POUR PERFUSION EN FLACON [Suspect]
     Active Substance: MESNA
     Dosage: 1 CYCLE, FIRST LINE OF TREATMENT
     Route: 042
     Dates: start: 20130118, end: 20130121
  35. HOLOXAN 2000 MG, POUDRE POUR USAGE PARENT?RAL [Suspect]
     Active Substance: IFOSFAMIDE
     Dosage: 1 CYCLE, FIRST LINE OF TREATMENT
     Route: 042
     Dates: start: 20121228, end: 20121230
  36. IFOSFAMIDE EG [Suspect]
     Active Substance: IFOSFAMIDE
     Dosage: 1 CYCLE, SECOND LINE OF TREATMENT
     Route: 042
     Dates: start: 20130828, end: 20130831
  37. HOLOXAN 2000 MG, POUDRE POUR USAGE PARENT?RAL [Suspect]
     Active Substance: IFOSFAMIDE
     Dosage: 1 CYCLE, FIRST LINE OF TREATMENT
     Route: 042
     Dates: start: 20130301, end: 20130303
  38. METHOTREXATE [Suspect]
     Active Substance: METHOTREXATE
     Dosage: SECOND LINE OF TREATMENT
     Route: 042
     Dates: start: 20130426, end: 20130426
  39. METHOTREXATE [Suspect]
     Active Substance: METHOTREXATE
     Dosage: SECOND LINE OF TREATMENT
     Route: 042
     Dates: start: 20130506, end: 20130506
  40. ADRIBLASTINE [Suspect]
     Active Substance: DOXORUBICIN
     Dosage: 1 CYCLE
     Route: 065
     Dates: start: 20130118, end: 20130121
  41. UROMITEXAN 5 G/50 ML, SOLUTION INJECTABLE POUR PERFUSION EN FLACON [Suspect]
     Active Substance: MESNA
     Dosage: 1 CYCLE, FIRST LINE OF TREATMENT
     Route: 042
     Dates: start: 20130211, end: 20130211
  42. UROMITEXAN 5 G/50 ML, SOLUTION INJECTABLE POUR PERFUSION EN FLACON [Suspect]
     Active Substance: MESNA
     Dosage: 1 CYCLE, SECOND LINE OF TREATMENT
     Route: 042
     Dates: start: 20130520, end: 20130524
  43. UROMITEXAN 5 G/50 ML, SOLUTION INJECTABLE POUR PERFUSION EN FLACON [Suspect]
     Active Substance: MESNA
     Dosage: 1 CYCLE, SECOND LINE OF TREATMENT
     Route: 042
     Dates: start: 20130901, end: 20130901
  44. HOLOXAN 2000 MG, POUDRE POUR USAGE PARENT?RAL [Suspect]
     Active Substance: IFOSFAMIDE
     Dosage: 1 CYCLE, FIRST LINE OF TREATMENT
     Route: 042
     Dates: start: 20130211, end: 20130211
  45. METHOTREXATE [Suspect]
     Active Substance: METHOTREXATE
     Dosage: SECOND LINE OF TREATMENT
     Route: 042
     Dates: start: 20130810, end: 20130810
  46. CISPLATINE MERCK [Suspect]
     Active Substance: CISPLATIN
     Indication: OSTEOSARCOMA
     Dosage: 1 CYCLE
     Route: 065
     Dates: start: 20121207, end: 20121211

REACTIONS (2)
  - Renal tubular disorder [Unknown]
  - Hypophosphataemia [Unknown]

NARRATIVE: CASE EVENT DATE: 20130516
